FAERS Safety Report 5106858-5 (Version None)
Quarter: 2006Q3

REPORT INFORMATION
  Report Type: 
  Country: None (occurrence: None)
  Receive Date: 20060913
  Receipt Date: 20060830
  Transmission Date: 20061208
  Serious: Yes (Other)
  Sender: FDA-Public Use
  Company Number: 2006R3-03580

PATIENT
  Age: 9 Month
  Sex: Male

DRUGS (1)
  1. CEFPODOXIME PROXETIL [Suspect]

REACTIONS (1)
  - ANAPHYLACTIC SHOCK [None]
